FAERS Safety Report 9391244 (Version 1)
Quarter: 2013Q3

REPORT INFORMATION
  Report Type: Spontaneous
  Country: US (occurrence: None)
  Receive Date: 20130705
  Receipt Date: 20130705
  Transmission Date: 20140515
  Serious: Yes (Hospitalization, Other)
  Sender: FDA-Public Use
  Company Number: CL-502-13

PATIENT
  Sex: Female

DRUGS (2)
  1. ONDANSETRON [Suspect]
     Indication: NAUSEA
     Route: 048
     Dates: start: 20130506, end: 20130507
  2. ZOLOFT [Suspect]

REACTIONS (18)
  - Anxiety [None]
  - Aphagia [None]
  - Depression [None]
  - Negative thoughts [None]
  - Violence-related symptom [None]
  - Crying [None]
  - Affect lability [None]
  - Insomnia [None]
  - Vomiting [None]
  - Feeling abnormal [None]
  - Drug hypersensitivity [None]
  - Drug ineffective [None]
  - Malaise [None]
  - Anxiety [None]
  - Mental disorder [None]
  - Thinking abnormal [None]
  - Maternal exposure during pregnancy [None]
  - Personality change [None]
